FAERS Safety Report 5818702-9 (Version None)
Quarter: 2008Q3

REPORT INFORMATION
  Report Type: 
  Country: None (occurrence: None)
  Receive Date: 20080723
  Receipt Date: 20080604
  Transmission Date: 20090109
  Serious: No
  Sender: FDA-Public Use
  Company Number: US-BAYER-200825049NA

PATIENT
  Age: 54 Year
  Sex: Female

DRUGS (1)
  1. MAGNEVIST [Suspect]
     Indication: NUCLEAR MAGNETIC RESONANCE IMAGING
     Dosage: TOTAL DAILY DOSE: 20 ML  UNIT DOSE: 10 ML
     Route: 042
     Dates: start: 20080522, end: 20080522

REACTIONS (5)
  - ABNORMAL SENSATION IN EYE [None]
  - ERYTHEMA [None]
  - EYELID OEDEMA [None]
  - LIP SWELLING [None]
  - URTICARIA [None]
